FAERS Safety Report 22641214 (Version 7)
Quarter: 2024Q1

REPORT INFORMATION
  Report Type: Spontaneous
  Country: GB (occurrence: GB)
  Receive Date: 20230626
  Receipt Date: 20240329
  Transmission Date: 20240409
  Serious: Yes (Other)
  Sender: FDA-Public Use
  Company Number: GB-MYLANLABS-2022M1087395

PATIENT
  Age: 63 Year
  Sex: Male

DRUGS (1)
  1. CLOZARIL [Suspect]
     Active Substance: CLOZAPINE
     Indication: Schizophrenia
     Dosage: UNK
     Route: 048
     Dates: start: 20010701

REACTIONS (3)
  - Leukocytosis [Not Recovered/Not Resolved]
  - Chronic lymphocytic leukaemia [Unknown]
  - Blood disorder [Unknown]

NARRATIVE: CASE EVENT DATE: 20220815
